FAERS Safety Report 5817694-6 (Version None)
Quarter: 2008Q3

REPORT INFORMATION
  Report Type: 
  Country: None (occurrence: None)
  Receive Date: 20080722
  Receipt Date: 20080711
  Transmission Date: 20090109
  Serious: Yes (Other)
  Sender: FDA-Public Use
  Company Number: PHHY2008IN13495

PATIENT
  Sex: Male

DRUGS (2)
  1. ASUNRA [Suspect]
     Indication: MYELOFIBROSIS
     Dosage: 20 MG/KG, UNK
  2. ASUNRA [Suspect]
     Indication: IRON OVERLOAD

REACTIONS (1)
  - DYSPNOEA [None]
